FAERS Safety Report 4506594-X (Version None)
Quarter: 2004Q4

REPORT INFORMATION
  Report Type: 
  Country: None (occurrence: None)
  Receive Date: 20041122
  Receipt Date: 20041115
  Transmission Date: 20050328
  Serious: Yes (Life-Threatening)
  Sender: FDA-Public Use
  Company Number: FR-BRISTOL-MYERS SQUIBB COMPANY-12770046

PATIENT
  Age: 59 Year
  Sex: Male
  Weight: 90 kg

DRUGS (10)
  1. HOLOXAN [Suspect]
     Indication: T-CELL LYMPHOMA
     Dosage: START DATE:  22-JUN-2002
     Route: 042
     Dates: start: 20021001, end: 20021001
  2. CISPLATIN [Suspect]
     Indication: T-CELL LYMPHOMA
     Dosage: START DATE:  03-APR-2002
     Route: 042
     Dates: start: 20020425, end: 20020425
  3. VEPESIDE-SANDOZ [Suspect]
     Indication: T-CELL LYMPHOMA
     Dosage: START DATE:  03-APR-2002
     Route: 042
     Dates: start: 20021001, end: 20021001
  4. ARACYTINE [Suspect]
     Indication: T-CELL LYMPHOMA
     Dosage: START DATE:  05-APR-2002
     Route: 042
     Dates: start: 20020426, end: 20020426
  5. METHYLPREDNISOLONE [Suspect]
     Indication: T-CELL LYMPHOMA
     Dosage: START DATE:  03-APR-2002
     Route: 042
     Dates: start: 20020426, end: 20020426
  6. MESNA [Concomitant]
     Dates: start: 20020101, end: 20020101
  7. TRIATEC [Concomitant]
  8. LASILIX [Concomitant]
  9. PREVISCAN [Concomitant]
  10. FERROGRAD [Concomitant]

REACTIONS (12)
  - ACUTE LEUKAEMIA [None]
  - ACUTE MYELOID LEUKAEMIA [None]
  - BLOOD IRON DECREASED [None]
  - HAEMORRHOIDS [None]
  - LEUKOPENIA [None]
  - LYMPHADENOPATHY [None]
  - NIGHT SWEATS [None]
  - PAIN [None]
  - RECTAL HAEMORRHAGE [None]
  - SERUM FERRITIN INCREASED [None]
  - THROMBOCYTOPENIA [None]
  - TREATMENT RELATED SECONDARY MALIGNANCY [None]
